FAERS Safety Report 16329973 (Version 1)
Quarter: 2019Q2

REPORT INFORMATION
  Report Type: Spontaneous
  Country: CN (occurrence: CN)
  Receive Date: 20190520
  Receipt Date: 20190520
  Transmission Date: 20190711
  Serious: Yes (Hospitalization)
  Sender: FDA-Public Use
  Company Number: CN-BAXTER-2019BAX009702

PATIENT
  Age: 45 Year
  Sex: Male
  Weight: 70 kg

DRUGS (16)
  1. ENDOXAN [Suspect]
     Active Substance: CYCLOPHOSPHAMIDE
     Indication: LYMPHOMA
     Dosage: CYCLOPHOSPHAMIDE 1G+0.9% NS 80ML
     Route: 041
     Dates: start: 20190226, end: 20190226
  2. 0.9% SODIUM CHLORIDE INJECTION [Suspect]
     Active Substance: SODIUM CHLORIDE
     Dosage: DOSE RE- INTRODUCED, CYCLOPHOSPHAMIDE+0.9% NS
     Route: 041
  3. EPIRUBICIN HYDROCHLORIDE. [Suspect]
     Active Substance: EPIRUBICIN HYDROCHLORIDE
     Dosage: DOSE RE-INTRODUCED, ETOPOSIDE+EPIRUBICIN+0.9% NS
     Route: 041
  4. ETOPOSIDE. [Suspect]
     Active Substance: ETOPOSIDE
     Indication: LYMPHOMA
     Dosage: ETOPOSIDE+EPIRUBICIN+0.9%NS
     Route: 041
     Dates: start: 20190222, end: 20190225
  5. EPIRUBICIN HYDROCHLORIDE. [Suspect]
     Active Substance: EPIRUBICIN HYDROCHLORIDE
     Indication: LYMPHOMA
     Dosage: ETOPOSIDE+EPIRUBICIN+0.9%NS
     Route: 041
     Dates: start: 20190222, end: 20190224
  6. 0.9% SODIUM CHLORIDE INJECTION [Suspect]
     Active Substance: SODIUM CHLORIDE
     Dosage: DOSE RE-INTRODUCED, RITUXIMAB+0.9% NS
     Route: 041
  7. 0.9% SODIUM CHLORIDE INJECTION [Suspect]
     Active Substance: SODIUM CHLORIDE
     Dosage: DOSE RE-INTRODUCED, ETOPOSIDE+EPIRUBICIN+0.9%NS
     Route: 041
  8. EPIRUBICIN HYDROCHLORIDE. [Suspect]
     Active Substance: EPIRUBICIN HYDROCHLORIDE
     Dosage: ETOPOSIDE+EPIRUBICIN+0.9%NS
     Route: 041
     Dates: start: 20190225, end: 20190225
  9. MABTHERA [Suspect]
     Active Substance: RITUXIMAB
     Indication: LYMPHOMA
     Dosage: RITUXIMAB 700MG+0.9% NS 700ML
     Route: 041
     Dates: start: 20190221, end: 20190221
  10. MABTHERA [Suspect]
     Active Substance: RITUXIMAB
     Dosage: DOSE RE-INTRODUCED, RITUXIMAB+0.9% NS
     Route: 041
  11. RECOMBINANT HUMAN GRANULOCYTE COLONY-STIMULATING FACTOR [Concomitant]
     Indication: PROPHYLAXIS
     Route: 058
     Dates: start: 20190228, end: 20190228
  12. ENDOXAN [Suspect]
     Active Substance: CYCLOPHOSPHAMIDE
     Dosage: DOSE RE- INTRODUCED, CYCLOPHOSPHAMIDE +0.9% NS
     Route: 041
  13. 0.9% SODIUM CHLORIDE INJECTION [Suspect]
     Active Substance: SODIUM CHLORIDE
     Dosage: ETOPOSIDE+EPIRUBICIN+0.9% NS
     Route: 041
     Dates: start: 20190222, end: 20190225
  14. ETOPOSIDE. [Suspect]
     Active Substance: ETOPOSIDE
     Dosage: DOSE RE-INTRODUCED, ETOPOSIDE +EPIRUBICIN +0.9% NS
     Route: 041
  15. 0.9% SODIUM CHLORIDE INJECTION [Suspect]
     Active Substance: SODIUM CHLORIDE
     Dosage: CYCLOPHOSPHAMIDE 1G+0.9% NS 80ML
     Route: 041
     Dates: start: 20190226, end: 20190226
  16. 0.9% SODIUM CHLORIDE INJECTION [Suspect]
     Active Substance: SODIUM CHLORIDE
     Indication: MEDICATION DILUTION
     Dosage: RITUXIMAB 700 MG+0.9% NS 700 ML
     Route: 041
     Dates: start: 20190221, end: 20190221

REACTIONS (1)
  - Bone marrow failure [Recovered/Resolved]

NARRATIVE: CASE EVENT DATE: 20190305
